FAERS Safety Report 4934783-9 (Version None)
Quarter: 2006Q1

REPORT INFORMATION
  Report Type: 
  Country: None (occurrence: None)
  Receive Date: 20060307
  Receipt Date: 20050930
  Transmission Date: 20060701
  Serious: Yes (Hospitalization, Congenital Anomaly, Other)
  Sender: FDA-Public Use
  Company Number: US-MERCK-0510USA02047

PATIENT
  Age: 59 Year
  Sex: Male
  Weight: 70 kg

DRUGS (14)
  1. VIOXX [Suspect]
     Indication: ARTHRALGIA
     Route: 048
     Dates: start: 20000801, end: 20021001
  2. ACETAMINOPHEN [Concomitant]
     Indication: ANALGESIC EFFECT
     Route: 065
  3. NORTRIPTYLINE [Concomitant]
     Route: 065
  4. FOLIC ACID [Concomitant]
     Route: 065
  5. VITAMINS (UNSPECIFIED) [Concomitant]
     Route: 065
  6. ASPIRIN [Concomitant]
     Route: 065
  7. ATACAND [Concomitant]
     Route: 065
  8. PREVACID [Concomitant]
     Route: 048
  9. PREVACID [Concomitant]
     Route: 048
  10. ZOCOR [Concomitant]
     Route: 065
  11. HUMALOG [Concomitant]
     Route: 065
  12. LANTUS [Concomitant]
     Route: 065
  13. SELENIUM (UNSPECIFIED) [Concomitant]
     Route: 048
  14. REGLAN [Concomitant]
     Route: 048

REACTIONS (16)
  - ANGIOPATHY [None]
  - CARDIAC FAILURE [None]
  - CONSTIPATION [None]
  - CORONARY ARTERY DISEASE [None]
  - DECUBITUS ULCER [None]
  - DIABETIC GASTROPARESIS [None]
  - DYSPNOEA [None]
  - DYSPNOEA PAROXYSMAL NOCTURNAL [None]
  - HYPOXIA [None]
  - INJURY [None]
  - ISCHAEMIC CARDIOMYOPATHY [None]
  - MYOCARDIAL INFARCTION [None]
  - MYOCARDIAL ISCHAEMIA [None]
  - ORTHOPNOEA [None]
  - SKIN NECROSIS [None]
  - THROMBOSIS [None]
